FAERS Safety Report 24603623 (Version 1)
Quarter: 2024Q4

REPORT INFORMATION
  Report Type: Spontaneous
  Country: GB (occurrence: GB)
  Receive Date: 20241111
  Receipt Date: 20241111
  Transmission Date: 20250114
  Serious: Yes (Other)
  Sender: MYLAN
  Company Number: GB-MHRA-TPP35483967C6404156YC1730804170570

PATIENT
  Age: 68 Year
  Sex: Male
  Weight: 86 kg

DRUGS (5)
  1. AMLODIPINE [Suspect]
     Active Substance: AMLODIPINE BESYLATE
     Indication: Hypertension
     Dosage: 5 MILLIGRAM, QD
     Route: 048
     Dates: start: 20240902, end: 20241105
  2. BETAMETHASONE DIPROPIONATE\CALCIPOTRIENE MONOHYDRATE [Concomitant]
     Active Substance: BETAMETHASONE DIPROPIONATE\CALCIPOTRIENE MONOHYDRATE
     Indication: Ill-defined disorder
     Dosage: UNK UNK, QD (APPLY ONCE DAILY)
     Route: 065
     Dates: start: 20180214, end: 20240909
  3. RAMIPRIL [Concomitant]
     Active Substance: RAMIPRIL
     Indication: Ill-defined disorder
     Dosage: 1 DOSAGE FORM, QD (ONE CAPSULE ONCE DAILY FOR BLOOD PRESSURE)
     Route: 065
     Dates: start: 20231024
  4. RAMIPRIL [Concomitant]
     Active Substance: RAMIPRIL
     Indication: Blood pressure measurement
  5. MINERAL OIL\PARAFFIN [Concomitant]
     Active Substance: MINERAL OIL\PARAFFIN
     Indication: Ill-defined disorder
     Dosage: UNK (USE GENEROUSLY OVER LEGS AND BUTTOCKS AND BACK ...)
     Route: 065
     Dates: start: 20241105

REACTIONS (2)
  - Gingival hypertrophy [Unknown]
  - Joint swelling [Unknown]

NARRATIVE: CASE EVENT DATE: 20240902
